FAERS Safety Report 7646628-7 (Version None)
Quarter: 2011Q3

REPORT INFORMATION
  Report Type: 
  Country: None (occurrence: None)
  Receive Date: 20110725
  Receipt Date: 20110705
  Transmission Date: 20111222
  Serious: Yes (Congenital Anomaly)
  Sender: FDA-Public Use
  Company Number: B0732767A

PATIENT
  Sex: Male

DRUGS (4)
  1. SIMVASTATIN [Suspect]
     Indication: PRODUCT USED FOR UNKNOWN INDICATION
     Dosage: TRANSPLACENTARY
     Route: 064
  2. ENALAPRIL MALEATE [Suspect]
     Indication: HYPERTENSION
     Dosage: TRANSPLACENTARY
     Route: 064
  3. PROPRANOLOL HYDROCHLORIDE [Suspect]
     Indication: PRODUCT USED FOR UNKNOWN INDICATION
     Dosage: TRANSPLACENTARY
     Route: 064
  4. METHYLDOPA [Suspect]
     Indication: PRODUCT USED FOR UNKNOWN INDICATION
     Dosage: TRANSPLACENTARY
     Route: 064

REACTIONS (2)
  - CONGENITAL CYSTIC KIDNEY DISEASE [None]
  - MATERNAL DRUGS AFFECTING FOETUS [None]
